FAERS Safety Report 21339847 (Version 1)
Quarter: 2022Q3

REPORT INFORMATION
  Report Type: Spontaneous
  Country: US (occurrence: US)
  Receive Date: 20220915
  Receipt Date: 20220915
  Transmission Date: 20221026
  Serious: No
  Sender: FDA-Public Use
  Company Number: US-SA-SAC20220915000084

PATIENT
  Age: 45 Year
  Sex: Female

DRUGS (2)
  1. DUPIXENT [Suspect]
     Active Substance: DUPILUMAB
     Indication: Dermatitis atopic
     Dosage: 300 MG, QOW
     Route: 058
     Dates: start: 20211111
  2. RINVOQ [Suspect]
     Active Substance: UPADACITINIB
     Dates: start: 20220906

REACTIONS (6)
  - Headache [Recovering/Resolving]
  - Constipation [Recovering/Resolving]
  - Faeces hard [Recovering/Resolving]
  - Nausea [Recovering/Resolving]
  - Sinus disorder [Unknown]
  - Oropharyngeal pain [Unknown]

NARRATIVE: CASE EVENT DATE: 20220901
